FAERS Safety Report 7939868-0 (Version None)
Quarter: 2011Q4

REPORT INFORMATION
  Report Type: 
  Country: None (occurrence: None)
  Receive Date: 20111125
  Receipt Date: 20111115
  Transmission Date: 20120403
  Serious: Yes (Death, Other)
  Sender: FDA-Public Use
  Company Number: US-AMGEN-US385701

PATIENT
  Age: 65 Year
  Sex: Male

DRUGS (4)
  1. IMMUNE GLOBULIN NOS [Concomitant]
     Dosage: UNK
     Dates: start: 20090807
  2. RITUXIMAB [Concomitant]
     Dosage: UNK
     Dates: start: 20090825
  3. NPLATE [Suspect]
     Indication: IDIOPATHIC THROMBOCYTOPENIC PURPURA
     Dosage: 87 MUG, UNK
     Dates: start: 20090901, end: 20091229
  4. CORTICOSTEROIDS [Concomitant]
     Dosage: UNK
     Dates: start: 20090825

REACTIONS (2)
  - DEATH [None]
  - HEAD AND NECK CANCER [None]
